FAERS Safety Report 8386415 (Version 3)
Quarter: 2013Q2

REPORT INFORMATION
  Report Type: Spontaneous
  Country: US (occurrence: None)
  Receive Date: 20111221
  Receipt Date: 20121227
  Transmission Date: 20140414
  Serious: Yes (Hospitalization)
  Sender: FDA-Public Use
  Company Number: PHHY2010US18365

PATIENT
  Age: 48 Year
  Sex: Male

DRUGS (1)
  1. EXJADE [Suspect]
     Indication: THALASSAEMIA
     Dosage: 2000 MG DAILY, ORAL
     Route: 048

REACTIONS (3)
  - SICKLE CELL ANAEMIA [None]
  - Malaise [None]
  - Pain [None]
